FAERS Safety Report 23304537 (Version 1)
Quarter: 2023Q4

REPORT INFORMATION
  Report Type: Spontaneous
  Country: GB (occurrence: GB)
  Receive Date: 20231218
  Receipt Date: 20231218
  Transmission Date: 20240110
  Serious: Yes (Other)
  Sender: FDA-Public Use
  Company Number: None

PATIENT
  Age: 67 Year

DRUGS (5)
  1. DEXAMETHASONE [Suspect]
     Active Substance: DEXAMETHASONE
     Dosage: 6.6MG INJECTION BD 30/05-01/06, THEN 8MG BD 1 DAY, THEN 8MG OM 1 DAY
     Route: 065
  2. CARBOCYSTEINE [Concomitant]
     Active Substance: CARBOCYSTEINE
     Dosage: TIME INTERVAL: 0.33333333 DAYS: 750MG/10ML
  3. HALOPERIDOL [Concomitant]
     Active Substance: HALOPERIDOL
     Dosage: TIME INTERVAL: AS NECESSARY: 1MG/ML. BD
  4. OMEPRAZOLE [Concomitant]
     Active Substance: OMEPRAZOLE
  5. DALTEPARIN [Concomitant]
     Active Substance: DALTEPARIN
     Dosage: 5000UNITS/0.2ML
     Dates: start: 20230526

REACTIONS (1)
  - Hallucination [Unknown]
